FAERS Safety Report 9238764 (Version 1)
Quarter: 2013Q1

REPORT INFORMATION
  Report Type: Spontaneous
  Country: US (occurrence: None)
  Receive Date: 20121107
  Receipt Date: 20121107
  Transmission Date: 20140127
  Serious: No
  Sender: FDA-Public Use
  Company Number: 2012HGS-003808

PATIENT
  Age: 40 Year
  Sex: Female
  Weight: 149.69 kg

DRUGS (21)
  1. BENLYSTA [Suspect]
     Indication: SYSTEMIC LUPUS ERYTHEMATOSUS
     Dosage: 1 IN 28 D INTRAVENOUS DRIP
     Route: 041
     Dates: start: 20120618
  2. PLAQUENIL(HYDROCHLORQUINE) (HYDROCHLOROQUINE) [Concomitant]
  3. CELLCEPT (MYCOPHENOLATE MOFETIL) (MYCOPHENOLATE MOFETIL) [Concomitant]
  4. METFORMIN (METFORMIN) (METFORMIN) [Concomitant]
  5. BACLOFEN (BACLOFEN) (BACLOFEN) [Concomitant]
  6. MS CONTIN (MORPHINE SULFATE) (MORPHINE SULFATE) [Concomitant]
  7. PREDNISONE (PREDNISONE) (PREDNISONE) [Concomitant]
  8. RANITIDINE (RANITIDINE) (RANITIDINE) [Concomitant]
  9. CALCIUM (CALCIUM) (CALCIUM) [Concomitant]
  10. VITAMIN C [Concomitant]
  11. PLAVIX (CLOPIDOGREL BISULFATE) (CLOPIDOGREL BISULFATE) [Concomitant]
  12. ALDACTONE (SPRIONOLACTONE) (SPIRONOLACTONE) [Concomitant]
  13. PROPANOLOL (PROPANOLOL) (PROPANOLOL) [Concomitant]
  14. PRAVASTATIN (PRAVASTATIN) (PRAVASATIN) [Concomitant]
  15. RECLAST (ZOLENDRONIC ACID ) (ZOLENDRONIC ACID) [Concomitant]
  16. ZOFRAN (ONDANSETRON) (ONDANSETRON) [Concomitant]
  17. COMPAZINE (PROCHLOROPERAZINE) (PROCHLOROPERAZINE) [Concomitant]
  18. DUCOLAX (BISACODYL) (BISACODYL) [Concomitant]
  19. DEPO-PROVERA (MEDROXYPRGESTEROINE ACETATE)(MEDROXYPRGESTEROINE ACETATE) [Concomitant]
  20. FENTORA (FENTANYL CITRATE) (FENTANYL CITRATE) [Concomitant]
  21. GABAPENTIN (GABAPENTIN) (GABAPENTIN) [Concomitant]

REACTIONS (4)
  - Decreased appetite [None]
  - Oral pain [None]
  - Diarrhoea [None]
  - Pyrexia [None]
